FAERS Safety Report 4821270-1 (Version None)
Quarter: 2005Q4

REPORT INFORMATION
  Report Type: 
  Country: None (occurrence: None)
  Receive Date: 20051104
  Receipt Date: 20051104
  Transmission Date: 20060501
  Serious: Yes (Other)
  Sender: FDA-Public Use
  Company Number: None

PATIENT
  Age: 45 Year
  Sex: Female

DRUGS (3)
  1. CLONAZEPAM [Suspect]
     Indication: DEPRESSION
     Dosage: 1 MG PO BEDTIME
     Route: 048
     Dates: start: 20040301
  2. LEXAPRO [Concomitant]
  3. ADDERALL XR 10 [Concomitant]

REACTIONS (3)
  - DRUG EFFECT DECREASED [None]
  - GASTRIC DISORDER [None]
  - THERAPEUTIC RESPONSE UNEXPECTED WITH DRUG SUBSTITUTION [None]
